FAERS Safety Report 18933336 (Version 1)
Quarter: 2021Q1

REPORT INFORMATION
  Report Type: Spontaneous
  Country: US (occurrence: US)
  Receive Date: 20210224
  Receipt Date: 20210224
  Transmission Date: 20210420
  Serious: No
  Sender: FDA-Public Use
  Company Number: US-SA-2021SA061790

PATIENT
  Age: 63 Year
  Sex: Male

DRUGS (12)
  1. FLONAZE [Concomitant]
  2. PREDNISONE. [Concomitant]
     Active Substance: PREDNISONE
  3. SPIRIVA [Concomitant]
     Active Substance: TIOTROPIUM BROMIDE MONOHYDRATE
  4. TAMSULOSIN [Concomitant]
     Active Substance: TAMSULOSIN
  5. DUPIXENT [Suspect]
     Active Substance: DUPILUMAB
     Indication: ASTHMA
     Dosage: 300 MG, QOW
     Route: 058
     Dates: start: 20200803
  6. BREO ELLIPTA [Concomitant]
     Active Substance: FLUTICASONE FUROATE\VILANTEROL TRIFENATATE
  7. THEOPHYLLINE [Concomitant]
     Active Substance: THEOPHYLLINE ANHYDROUS
  8. BUDESONIDE. [Concomitant]
     Active Substance: BUDESONIDE
  9. SINGULAIR [Concomitant]
     Active Substance: MONTELUKAST SODIUM
  10. DOXYCYCLINE MONOHYDRATE [Concomitant]
     Active Substance: DOXYCYCLINE
  11. ALBUTEROL [SALBUTAMOL] [Concomitant]
     Active Substance: ALBUTEROL
  12. DULERA [Concomitant]
     Active Substance: FORMOTEROL FUMARATE DIHYDRATE\MOMETASONE FUROATE

REACTIONS (2)
  - Product dose omission issue [Unknown]
  - Dyspnoea [Unknown]
